FAERS Safety Report 9878613 (Version 2)
Quarter: 2014Q1

REPORT INFORMATION
  Report Type: Spontaneous
  Country: US (occurrence: US)
  Receive Date: 20140206
  Receipt Date: 20140206
  Transmission Date: 20141002
  Serious: Yes (Hospitalization)
  Sender: FDA-Public Use
  Company Number: US-ALLERGAN-1312516US

PATIENT
  Age: 63 Year
  Sex: Female

DRUGS (3)
  1. BOTOX [Suspect]
     Indication: FACIAL SPASM
     Dosage: 125 UNITS, SINGLE
     Route: 030
     Dates: start: 20130724, end: 20130724
  2. BOTOX [Suspect]
     Indication: TORTICOLLIS
     Dosage: 350 UNITS, SINGLE
     Route: 030
     Dates: start: 20130424, end: 20130424
  3. BOTOX [Suspect]
     Indication: MUSCLE SPASTICITY

REACTIONS (2)
  - Adverse drug reaction [Unknown]
  - Injection site pain [Unknown]
